FAERS Safety Report 18291656 (Version 1)
Quarter: 2020Q3

REPORT INFORMATION
  Report Type: Spontaneous
  Country: CN (occurrence: CN)
  Receive Date: 20200922
  Receipt Date: 20200922
  Transmission Date: 20201103
  Serious: Yes (Hospitalization)
  Sender: FDA-Public Use
  Company Number: CN-BAXTER-2020BAX019061

PATIENT
  Age: 27 Year
  Sex: Female
  Weight: 41.6 kg

DRUGS (4)
  1. ENDOXAN [Suspect]
     Active Substance: CYCLOPHOSPHAMIDE
     Dosage: DOSE RE?INTRODUCED, CYCLOPHOSPHAMIDE 2484MG + 0.9% SODIUM CHLORIDE 250 ML
     Route: 041
     Dates: start: 20200827, end: 20200827
  2. 0.9% SODIUM CHLORIDE INJECTION [Suspect]
     Active Substance: SODIUM CHLORIDE
     Dosage: DOSE RE?INTRODUCED, CYCLOPHOSPHAMIDE 2484MG + 0.9% SODIUM CHLORIDE 250 ML
     Route: 041
     Dates: start: 20200827, end: 20200827
  3. ENDOXAN [Suspect]
     Active Substance: CYCLOPHOSPHAMIDE
     Indication: ACUTE LYMPHOCYTIC LEUKAEMIA
     Dosage: 2484MG CYCLOPHOSPHAMIDE + 250ML 0.9% SODIUM CHLORIDE
     Route: 041
     Dates: start: 20200826, end: 20200826
  4. 0.9% SODIUM CHLORIDE INJECTION [Suspect]
     Active Substance: SODIUM CHLORIDE
     Indication: MEDICATION DILUTION
     Dosage: 2484MG CYCLOPHOSPHAMIDE NEEDLE + 250ML 0.9% SODIUM CHLORIDE INJECTION
     Route: 041
     Dates: start: 20200826, end: 20200826

REACTIONS (6)
  - Urinary tract pain [Recovering/Resolving]
  - Abdominal pain [Recovering/Resolving]
  - Diarrhoea [Recovering/Resolving]
  - Micturition urgency [Unknown]
  - Pollakiuria [Unknown]
  - Chest pain [Recovering/Resolving]

NARRATIVE: CASE EVENT DATE: 20200826
